FAERS Safety Report 5567512-9 (Version None)
Quarter: 2007Q4

REPORT INFORMATION
  Report Type: 
  Country: None (occurrence: None)
  Receive Date: 20071219
  Receipt Date: 20071207
  Transmission Date: 20080405
  Serious: Yes (Hospitalization, Other)
  Sender: FDA-Public Use
  Company Number: US-PFIZER INC-2007049312

PATIENT
  Sex: Female
  Weight: 92 kg

DRUGS (8)
  1. SOMAVERT [Suspect]
     Indication: ACROMEGALY
     Route: 058
  2. NASONEX [Concomitant]
  3. AMLODIPINE [Concomitant]
  4. METFORMIN HCL [Concomitant]
  5. FEXOFENADINE [Concomitant]
  6. SYNTHROID [Concomitant]
  7. POTASSIUM CHLORIDE [Concomitant]
  8. IBUPROFEN [Concomitant]

REACTIONS (1)
  - ACUTE MYELOID LEUKAEMIA [None]
